FAERS Safety Report 8433056-X (Version None)
Quarter: 2012Q2

REPORT INFORMATION
  Report Type: 
  Country: None (occurrence: None)
  Receive Date: 20120613
  Receipt Date: 20120604
  Transmission Date: 20120825
  Serious: Yes (Life-Threatening)
  Sender: FDA-Public Use
  Company Number: IT-BRISTOL-MYERS SQUIBB COMPANY-16677486

PATIENT
  Age: 68 Year
  Sex: Female

DRUGS (3)
  1. LYRICA [Concomitant]
     Route: 048
  2. GLUCOPHAGE [Suspect]
     Indication: DIABETES MELLITUS
     Dosage: GLUCOPHAGE 500MG
     Route: 048
     Dates: start: 20120519, end: 20120523
  3. IRBESARTAN [Concomitant]
     Dosage: APROVEL 150 MG
     Route: 048

REACTIONS (3)
  - RENAL FAILURE [None]
  - SHOCK [None]
  - LACTIC ACIDOSIS [None]
